FAERS Safety Report 9830060 (Version 1)
Quarter: 2014Q1

REPORT INFORMATION
  Report Type: Report from Study
  Country: US (occurrence: US)
  Receive Date: 20140120
  Receipt Date: 20140120
  Transmission Date: 20141002
  Serious: Yes (Hospitalization)
  Sender: FDA-Public Use
  Company Number: US-ABBVIE-14P-163-1190378-00

PATIENT
  Age: 31 Year
  Sex: Male

DRUGS (4)
  1. HUMIRA [Suspect]
     Indication: CROHN^S DISEASE
     Dates: start: 20131124
  2. PREDNISONE [Concomitant]
     Indication: PRODUCT USED FOR UNKNOWN INDICATION
  3. PREDNISONE [Concomitant]
  4. PREDNISONE [Concomitant]

REACTIONS (13)
  - Chills [Recovered/Resolved]
  - Haematochezia [Recovered/Resolved]
  - Pyrexia [Recovered/Resolved]
  - Crohn^s disease [Recovered/Resolved]
  - Diarrhoea [Recovered/Resolved]
  - Dehydration [Unknown]
  - Abdominal pain [Recovered/Resolved]
  - Chest discomfort [Unknown]
  - Cough [Unknown]
  - Productive cough [Unknown]
  - Dysgeusia [Unknown]
  - Increased upper airway secretion [Unknown]
  - Upper-airway cough syndrome [Unknown]
